FAERS Safety Report 8570380 (Version 4)
Quarter: 2012Q4

REPORT INFORMATION
  Report Type: 
  Country: DK (occurrence: DK)
  Receive Date: 20120521
  Receipt Date: 20121012
  Transmission Date: 20130627
  Serious: Yes (Death, Other)
  Sender: FDA-Public Use
  Company Number: DK-UCBSA-057435

PATIENT
  Age: 44 Year
  Sex: Male
  Weight: 52 kg

DRUGS (5)
  1. VIMPAT [Suspect]
     Indication: EPILEPSY
     Dosage: CUMMULATIVE DOSE TO FIRST FREQUENCY: 84400 MG
     Route: 048
     Dates: start: 20111013
  2. TEGRETOL RETARD [Suspect]
     Indication: EPILEPSY
     Dosage: 200 + 400 MG
  3. FRISIUM [Suspect]
     Indication: EPILEPSY
     Dosage: p.n. WHEN HAVING SEIZURES 10 MH ONCE DAILY, NOT FIXED
     Route: 048
     Dates: start: 20090406
  4. PAMOL [Concomitant]
     Indication: PAIN
  5. IBUMAX [Concomitant]
     Indication: PAIN

REACTIONS (3)
  - Asphyxia [Fatal]
  - Epilepsy [Fatal]
  - Fall [Unknown]
